FAERS Safety Report 9849844 (Version 1)
Quarter: 2014Q1

REPORT INFORMATION
  Report Type: Spontaneous
  Country: US (occurrence: None)
  Receive Date: 20140124
  Receipt Date: 20140124
  Transmission Date: 20141002
  Serious: Yes (Disabling)
  Sender: FDA-Public Use
  Company Number: None

PATIENT
  Age: 52 Year
  Sex: Female
  Weight: 61.24 kg

DRUGS (1)
  1. HUMIRA [Suspect]
     Indication: ANKYLOSING SPONDYLITIS

REACTIONS (9)
  - Sinusitis [None]
  - Muscular weakness [None]
  - Balance disorder [None]
  - Pain [None]
  - Paraesthesia [None]
  - Neuropathy peripheral [None]
  - Gastrointestinal disorder [None]
  - Fatigue [None]
  - Systemic lupus erythematosus [None]
